FAERS Safety Report 5126658-X (Version None)
Quarter: 2006Q4

REPORT INFORMATION
  Report Type: 
  Country: None (occurrence: None)
  Receive Date: 20061013
  Receipt Date: 20060926
  Transmission Date: 20070319
  Serious: Yes (Other)
  Sender: FDA-Public Use
  Company Number: PHEH2006US12211

PATIENT
  Age: 66 Year
  Sex: Female

DRUGS (9)
  1. EXJADE [Suspect]
     Indication: BLOOD IRON INCREASED
     Dosage: 1250 MG, QD
     Route: 048
     Dates: start: 20060909, end: 20060916
  2. ALPRAZOLAM [Concomitant]
     Dosage: 0.5 MG, BID
     Route: 048
     Dates: start: 20060831
  3. CALCIUM GLUCONATE [Concomitant]
     Dosage: 600 MG, UNK
     Route: 048
     Dates: start: 20060622
  4. DIPHENOXYLATE W/ATROPINE SULFATE [Concomitant]
     Dosage: 2.5 MG, QD
     Route: 048
     Dates: start: 20060707
  5. HYZAAR [Concomitant]
     Dosage: 50/125MG QD
     Route: 048
     Dates: start: 20050811
  6. LEXAPRO [Concomitant]
     Dosage: 10 MG, QD
     Route: 048
     Dates: start: 20050212
  7. NADOLOL [Concomitant]
     Dosage: 40 MG, QD
     Route: 048
     Dates: start: 20060726
  8. PREMARIN [Concomitant]
     Dosage: 10 MG, QD
     Route: 048
     Dates: start: 20051222
  9. WELCHOL [Concomitant]
     Dosage: 1875 MG, BID
     Route: 048
     Dates: start: 20060707

REACTIONS (4)
  - EYELID DISORDER [None]
  - PALATAL OEDEMA [None]
  - RASH [None]
  - SWOLLEN TONGUE [None]
